FAERS Safety Report 4650363-7 (Version None)
Quarter: 2005Q2

REPORT INFORMATION
  Report Type: 
  Country: None (occurrence: None)
  Receive Date: 20050429
  Receipt Date: 20050415
  Transmission Date: 20051028
  Serious: Yes (Hospitalization)
  Sender: FDA-Public Use
  Company Number: 2005AP02079

PATIENT
  Age: 69 Year
  Sex: Male

DRUGS (5)
  1. IRESSA [Suspect]
     Indication: COLORECTAL CANCER
     Dosage: 250 MG DAILY PO
     Route: 048
     Dates: start: 20050214
  2. CAPECITABINE [Suspect]
     Indication: COLORECTAL CANCER
     Dosage: 1250 MG/M2 PO
     Route: 048
     Dates: start: 20050214
  3. BIFONAZOLE [Concomitant]
  4. DILTIAZEM [Concomitant]
  5. ACETYL SALICYLIC ACID USP BAT [Concomitant]

REACTIONS (8)
  - BALANITIS [None]
  - COUGH [None]
  - DIARRHOEA [None]
  - ERYTHEMA [None]
  - PYREXIA [None]
  - SKIN INFECTION [None]
  - SKIN TOXICITY [None]
  - STOMATITIS [None]
